FAERS Safety Report 7681603-8 (Version None)
Quarter: 2011Q3

REPORT INFORMATION
  Report Type: 
  Country: None (occurrence: None)
  Receive Date: 20110812
  Receipt Date: 20110802
  Transmission Date: 20111222
  Serious: Yes (Other)
  Sender: FDA-Public Use
  Company Number: PHHY2011AU70282

PATIENT
  Age: 60 Year
  Sex: Male

DRUGS (3)
  1. ONBREZ [Suspect]
     Dosage: UNK UKN, UNK
  2. BUDESONIDE [Concomitant]
  3. IPRATROPIUM BROMIDE [Concomitant]

REACTIONS (3)
  - DYSPNOEA [None]
  - ANXIETY [None]
  - LUNG DISORDER [None]
